FAERS Safety Report 20430232 (Version 1)
Quarter: 2022Q1

REPORT INFORMATION
  Report Type: Spontaneous
  Country: US (occurrence: None)
  Receive Date: 20220203
  Receipt Date: 20220203
  Transmission Date: 20220423
  Serious: No
  Sender: FDA-Public Use
  Company Number: None

PATIENT
  Age: 75 Year
  Sex: Female
  Weight: 84.6 kg

DRUGS (12)
  1. IMATINIB MESYLATE [Suspect]
     Active Substance: IMATINIB MESYLATE
     Indication: Chronic myeloid leukaemia
     Dosage: FREQUENCY : DAILY;?
     Route: 048
     Dates: start: 20210320
  2. Ascorbic acid 500mg [Concomitant]
  3. VITAMIN D3 [Concomitant]
     Active Substance: CHOLECALCIFEROL
  4. ENALAPRIL [Concomitant]
     Active Substance: ENALAPRIL
  5. Hydrea 500mg [Concomitant]
  6. Polyethylene glycol 3350 17gm [Concomitant]
  7. SIMVASTATIN [Concomitant]
     Active Substance: SIMVASTATIN
  8. Super Omega-3 [Concomitant]
  9. CYCLOBENZAPRINE [Concomitant]
     Active Substance: CYCLOBENZAPRINE
  10. GABAPENTIN [Concomitant]
     Active Substance: GABAPENTIN
  11. NAPROXEN [Concomitant]
     Active Substance: NAPROXEN
  12. TRAZODONE [Concomitant]
     Active Substance: TRAZODONE HYDROCHLORIDE

REACTIONS (1)
  - Arthralgia [None]

NARRATIVE: CASE EVENT DATE: 20220203
